FAERS Safety Report 19212353 (Version 2)
Quarter: 2022Q2

REPORT INFORMATION
  Report Type: Spontaneous
  Country: US (occurrence: US)
  Receive Date: 20210504
  Receipt Date: 20220427
  Transmission Date: 20220721
  Serious: Yes (Hospitalization, Other)
  Sender: FDA-Public Use
  Company Number: US-ALVOGEN-2021-ALVOGEN-116907

PATIENT
  Age: 81 Year
  Sex: Female

DRUGS (6)
  1. NITROFURANTOIN [Suspect]
     Active Substance: NITROFURANTOIN
     Indication: Pyelonephritis acute
  2. CLONAZEPAM [Concomitant]
     Active Substance: CLONAZEPAM
     Indication: Product used for unknown indication
     Dosage: NIGHTLY
  3. GEMFIBROZIL [Concomitant]
     Active Substance: GEMFIBROZIL
     Indication: Product used for unknown indication
  4. VITAMINS [Concomitant]
     Active Substance: VITAMINS
     Indication: Product used for unknown indication
  5. PROTONIX [Concomitant]
     Active Substance: PANTOPRAZOLE SODIUM
     Indication: Product used for unknown indication
  6. Memantine/donepezil [Concomitant]
     Indication: Product used for unknown indication

REACTIONS (5)
  - Interstitial lung disease [Recovering/Resolving]
  - Pleural effusion [Recovering/Resolving]
  - Off label use [Unknown]
  - Pulmonary toxicity [Recovered/Resolved]
  - Pulmonary fibrosis [Recovered/Resolved]
